FAERS Safety Report 6563301-7 (Version None)
Quarter: 2010Q1

REPORT INFORMATION
  Report Type: 
  Country: None (occurrence: None)
  Receive Date: 20100130
  Receipt Date: 20091209
  Transmission Date: 20100710
  Serious: No
  Sender: FDA-Public Use
  Company Number: US-ABBOTT-09P-163-0614174-00

PATIENT
  Sex: Female
  Weight: 78.542 kg

DRUGS (8)
  1. HUMIRA [Suspect]
     Indication: RHEUMATOID ARTHRITIS
     Dates: start: 20090915
  2. METOPROLOL [Suspect]
     Indication: HYPERTENSION
     Dates: start: 20070101, end: 20091126
  3. METOPROLOL [Suspect]
     Dates: start: 20091127
  4. LOVOXYL [Concomitant]
     Indication: HYPOTHYROIDISM
  5. LYRICA [Concomitant]
     Indication: FIBROMYALGIA
  6. CYMBALTA [Concomitant]
     Indication: FIBROMYALGIA
  7. FUROSEMIDE [Concomitant]
     Indication: HYPERTENSION
  8. FUROSEMIDE [Concomitant]
     Indication: FLUID RETENTION

REACTIONS (3)
  - CONFUSIONAL STATE [None]
  - HEART RATE DECREASED [None]
  - HYPERTENSION [None]
